FAERS Safety Report 8450185-5 (Version None)
Quarter: 2012Q2

REPORT INFORMATION
  Report Type: 
  Country: None (occurrence: None)
  Receive Date: 20120614
  Receipt Date: 20120614
  Transmission Date: 20120825
  Serious: Yes (Other)
  Sender: FDA-Public Use
  Company Number: None

PATIENT
  Age: 34 Year
  Sex: Female
  Weight: 113.3993 kg

DRUGS (1)
  1. ZYRTEC [Suspect]
     Indication: SKIN DISORDER
     Dosage: 10 MG TABLET DAILY PO
     Route: 048
     Dates: start: 20060101

REACTIONS (5)
  - FORMICATION [None]
  - DRUG WITHDRAWAL SYNDROME [None]
  - BURNING SENSATION [None]
  - URTICARIA [None]
  - DISCOMFORT [None]
